FAERS Safety Report 22011244 (Version 1)
Quarter: 2023Q1

REPORT INFORMATION
  Report Type: Spontaneous
  Country: ES (occurrence: ES)
  Receive Date: 20230220
  Receipt Date: 20230220
  Transmission Date: 20230417
  Serious: Yes (Other)
  Sender: FDA-Public Use
  Company Number: ES-PFIZER INC-PV202300024356

PATIENT
  Sex: Female

DRUGS (1)
  1. PACLITAXEL [Suspect]
     Active Substance: PACLITAXEL
     Indication: Neoadjuvant therapy
     Dosage: FORM OF ADMIN - SOLUTION FOR INJECTION

REACTIONS (1)
  - Anaphylactic reaction [None]
